FAERS Safety Report 6205697-1 (Version None)
Quarter: 2009Q2

REPORT INFORMATION
  Report Type: 
  Country: None (occurrence: None)
  Receive Date: 20090527
  Receipt Date: 20090416
  Transmission Date: 20091009
  Serious: No
  Sender: FDA-Public Use
  Company Number: US-ABBOTT-09P-163-0568975-00

PATIENT
  Sex: Female
  Weight: 122.58 kg

DRUGS (3)
  1. SIMCOR [Suspect]
     Indication: BLOOD CHOLESTEROL INCREASED
     Dosage: 500MG/20MG DAILY
     Dates: start: 20090301
  2. TRIAMTERENE AND HYDROCHLOROTHIAZIDE [Concomitant]
     Indication: FLUID RETENTION
  3. PHENTERMINE [Concomitant]
     Indication: WEIGHT CONTROL

REACTIONS (11)
  - ABDOMINAL DISCOMFORT [None]
  - CHILLS [None]
  - DIZZINESS [None]
  - FALL [None]
  - FATIGUE [None]
  - FLUSHING [None]
  - GAIT DISTURBANCE [None]
  - HYPERHIDROSIS [None]
  - NAUSEA [None]
  - PARAESTHESIA [None]
  - PRURITUS GENERALISED [None]
